FAERS Safety Report 13575158 (Version 1)
Quarter: 2017Q2

REPORT INFORMATION
  Report Type: Spontaneous
  Country: US (occurrence: US)
  Receive Date: 20170524
  Receipt Date: 20170524
  Transmission Date: 20170830
  Serious: Yes (Other)
  Sender: FDA-Public Use
  Company Number: US-AMGEN-USASP2017075572

PATIENT
  Age: 76 Year
  Sex: Female

DRUGS (29)
  1. VICODIN [Concomitant]
     Active Substance: ACETAMINOPHEN\HYDROCODONE BITARTRATE
     Dosage: UNK UNK, QD
  2. NORTRIPTYLINE [Concomitant]
     Active Substance: NORTRIPTYLINE
     Indication: MUSCLE SPASMS
     Dosage: 20 MG, QHS
  3. COENZYME Q10 [Concomitant]
     Active Substance: UBIDECARENONE
  4. NAPROXEN. [Concomitant]
     Active Substance: NAPROXEN
     Indication: PAIN
  5. ATENOLOL. [Concomitant]
     Active Substance: ATENOLOL
     Dosage: 12.5 MG, BID
  6. LIDOCAINE. [Concomitant]
     Active Substance: LIDOCAINE
     Indication: BACK PAIN
  7. PRILOSEC [Concomitant]
     Active Substance: OMEPRAZOLE MAGNESIUM
  8. B COMPLEX B12 [Concomitant]
  9. DYMISTA [Concomitant]
     Active Substance: AZELASTINE HYDROCHLORIDE\FLUTICASONE PROPIONATE
     Route: 045
  10. LIDOCAINE. [Concomitant]
     Active Substance: LIDOCAINE
     Indication: ARTHRALGIA
     Dosage: UNK UNK, AS NECESSARY
  11. MAGNESIUM CITRATE. [Concomitant]
     Active Substance: MAGNESIUM CITRATE
  12. AMBIEN [Concomitant]
     Active Substance: ZOLPIDEM TARTRATE
     Dosage: AT BED TIME
  13. PLAQUENIL [Concomitant]
     Active Substance: HYDROXYCHLOROQUINE SULFATE
  14. LOSARTIN [Concomitant]
     Active Substance: LOSARTAN
     Dosage: 50 MG, BID
  15. ATROPINE. [Concomitant]
     Active Substance: ATROPINE
  16. VITAMIN C [Concomitant]
     Active Substance: ASCORBIC ACID
  17. METAMUCIL [Concomitant]
     Active Substance: PLANTAGO SEED
  18. VITAMIN D3 [Concomitant]
     Active Substance: CHOLECALCIFEROL
     Dosage: 4000 MG, QD
  19. ESCITALOPRAM OXALATE. [Concomitant]
     Active Substance: ESCITALOPRAM OXALATE
  20. BUMEX [Concomitant]
     Active Substance: BUMETANIDE
     Dosage: 5 MG, BID
  21. ATROVENT [Concomitant]
     Active Substance: IPRATROPIUM BROMIDE
     Indication: ASTHMA
     Dosage: UNK
  22. SYMBICORT [Concomitant]
     Active Substance: BUDESONIDE\FORMOTEROL FUMARATE DIHYDRATE
  23. MULTIVITAMIN [Concomitant]
     Active Substance: VITAMINS
  24. CALCIUM CITRATE [Concomitant]
     Active Substance: CALCIUM CITRATE
  25. NAPROXEN. [Concomitant]
     Active Substance: NAPROXEN
     Indication: OSTEOARTHRITIS
     Dosage: UNK
     Dates: start: 1997
  26. HYDROCODONE [Concomitant]
     Active Substance: HYDROCODONE
     Dosage: UNK UNK, QHS
  27. ARANESP [Suspect]
     Active Substance: DARBEPOETIN ALFA
     Indication: NEPHROGENIC ANAEMIA
     Dosage: 60 MG, EVERY 3 TO 6 WEEKS
     Route: 058
  28. SELENIUM [Concomitant]
     Active Substance: SELENIUM
  29. ALPHA LIPOIC ACID [Concomitant]
     Active Substance: .ALPHA.-LIPOIC ACID

REACTIONS (13)
  - Diverticulum [Unknown]
  - Rectocele [Unknown]
  - Spinal column stenosis [Unknown]
  - Sciatica [Unknown]
  - Colonic abscess [Unknown]
  - Lichen planus [Unknown]
  - Breast mass [Unknown]
  - Serum ferritin increased [Unknown]
  - Cervical radiculopathy [Unknown]
  - Oral lichen planus [Unknown]
  - Blood iron decreased [Unknown]
  - Osteopenia [Unknown]
  - Gastrointestinal disorder [Unknown]

NARRATIVE: CASE EVENT DATE: 2016
